FAERS Safety Report 15602389 (Version 1)
Quarter: 2018Q4

REPORT INFORMATION
  Report Type: Spontaneous
  Country: US (occurrence: US)
  Receive Date: 20181109
  Receipt Date: 20181109
  Transmission Date: 20190205
  Serious: Yes (Other)
  Sender: FDA-Public Use
  Company Number: PHHY2018US145565

PATIENT
  Age: 74 Year
  Sex: Female

DRUGS (9)
  1. PREDNISONE. [Suspect]
     Active Substance: PREDNISONE
     Indication: DRUG REACTION WITH EOSINOPHILIA AND SYSTEMIC SYMPTOMS
     Dosage: 80 MG, UNK
     Route: 048
  2. PREDNISONE. [Suspect]
     Active Substance: PREDNISONE
     Dosage: 120 MG, UNK
     Route: 048
  3. DEXAMETHASONE. [Concomitant]
     Active Substance: DEXAMETHASONE
     Dosage: 8 MG, UNK (FOR 2 CONSECUTIVE DAYS/7 DAYS)
     Route: 048
  4. DEXAMETHASONE. [Concomitant]
     Active Substance: DEXAMETHASONE
     Indication: DRUG REACTION WITH EOSINOPHILIA AND SYSTEMIC SYMPTOMS
     Dosage: 12 MG, UNK (FOR 2 CONSECUTIVE DAYS PER WEEK)
     Route: 048
  5. DEXAMETHASONE. [Concomitant]
     Active Substance: DEXAMETHASONE
     Dosage: 4 MG, UNK (FOR 2 CONSECUTIVE DAYS/7 DAYS)
     Route: 048
  6. PREDNISONE. [Suspect]
     Active Substance: PREDNISONE
     Dosage: 20 MG, UNK
     Route: 048
  7. PREDNISONE. [Suspect]
     Active Substance: PREDNISONE
     Dosage: 40 MG, UNK
     Route: 048
  8. METHYLPREDNISOLONE. [Suspect]
     Active Substance: METHYLPREDNISOLONE
     Indication: DRUG REACTION WITH EOSINOPHILIA AND SYSTEMIC SYMPTOMS
     Dosage: 125 MG, UNK
     Route: 042
  9. PREDNISONE. [Suspect]
     Active Substance: PREDNISONE
     Dosage: 60 MG, UNK
     Route: 048

REACTIONS (4)
  - Hypothalamic pituitary adrenal axis suppression [Unknown]
  - Blood pressure abnormal [Unknown]
  - Weight increased [Unknown]
  - Hyperglycaemia [Unknown]
